FAERS Safety Report 22265306 (Version 1)
Quarter: 2023Q2

REPORT INFORMATION
  Report Type: Spontaneous
  Country: US (occurrence: US)
  Receive Date: 20230428
  Receipt Date: 20230428
  Transmission Date: 20230722
  Serious: No
  Sender: FDA-Public Use
  Company Number: US-ADVANZ PHARMA-202210007289

PATIENT

DRUGS (1)
  1. ZONISAMIDE [Suspect]
     Active Substance: ZONISAMIDE
     Indication: Epilepsy
     Dosage: UNK, BID (ZONEGRAN)

REACTIONS (3)
  - Gait disturbance [Unknown]
  - Decreased appetite [Unknown]
  - Dizziness [Unknown]
